FAERS Safety Report 18283032 (Version 1)
Quarter: 2020Q3

REPORT INFORMATION
  Report Type: Report from Study
  Country: IT (occurrence: IT)
  Receive Date: 20200918
  Receipt Date: 20200918
  Transmission Date: 20201103
  Serious: Yes (Other)
  Sender: FDA-Public Use
  Company Number: IT-TEVA-2020-IT-1828244

PATIENT
  Age: 83 Year
  Sex: Male

DRUGS (1)
  1. CLOZAPINE. [Suspect]
     Active Substance: CLOZAPINE
     Indication: MEDICATION ERROR
     Dosage: 100 MG
     Route: 048
     Dates: start: 20200721, end: 20200721

REACTIONS (7)
  - Depressed level of consciousness [Recovering/Resolving]
  - Asthenia [Recovering/Resolving]
  - Sopor [Recovering/Resolving]
  - Vertigo [Recovering/Resolving]
  - Bradyphrenia [Recovering/Resolving]
  - Malaise [Recovering/Resolving]
  - Medication error [Recovering/Resolving]

NARRATIVE: CASE EVENT DATE: 20200721
